FAERS Safety Report 6344805-9 (Version None)
Quarter: 2009Q3

REPORT INFORMATION
  Report Type: 
  Country: None (occurrence: None)
  Receive Date: 20090904
  Receipt Date: 20090901
  Transmission Date: 20100115
  Serious: Yes (Death)
  Sender: FDA-Public Use
  Company Number: 0909-SPO-SPLN-0111 (0)

PATIENT

DRUGS (1)
  1. SUPPRELIN LA [Suspect]
     Indication: DRUG USE FOR UNKNOWN INDICATION
     Dosage: 1 IN 1 Y, SUB Q, IMPLANT
     Route: 058

REACTIONS (1)
  - DEATH [None]
